FAERS Safety Report 12007895 (Version 1)
Quarter: 2016Q1

REPORT INFORMATION
  Report Type: Spontaneous
  Country: JP (occurrence: JP)
  Receive Date: 20160205
  Receipt Date: 20160205
  Transmission Date: 20160526
  Serious: Yes (Other)
  Sender: FDA-Public Use
  Company Number: JP-BEH-2016058698

PATIENT
  Sex: Male

DRUGS (1)
  1. SANGLOPOR I.V. INFUSION 2.5 [Suspect]
     Active Substance: HUMAN IMMUNOGLOBULIN G
     Indication: PRODUCT USED FOR UNKNOWN INDICATION
     Route: 065
     Dates: start: 20140212, end: 20140730

REACTIONS (4)
  - Sinusitis [Unknown]
  - Pyoderma [Unknown]
  - Respiratory tract infection [Unknown]
  - Otitis media [Unknown]
